FAERS Safety Report 5760041-9 (Version None)
Quarter: 2008Q2

REPORT INFORMATION
  Report Type: 
  Country: None (occurrence: None)
  Receive Date: 20080605
  Receipt Date: 20080528
  Transmission Date: 20081010
  Serious: Yes (Other)
  Sender: FDA-Public Use
  Company Number: PHHO2006GB09572

PATIENT
  Sex: Female
  Weight: 62 kg

DRUGS (3)
  1. ZOLEDRONIC ACID [Suspect]
     Indication: METASTASES TO BONE
     Dosage: 4 MG, UNK
     Route: 042
     Dates: start: 20040917, end: 20050620
  2. LETROZOLE [Suspect]
  3. GABAPENTIN [Suspect]

REACTIONS (21)
  - ABDOMINAL DISTENSION [None]
  - DYSAESTHESIA [None]
  - ENDODONTIC PROCEDURE [None]
  - FOOT FRACTURE [None]
  - GINGIVITIS [None]
  - HYPERTENSION [None]
  - IMPAIRED HEALING [None]
  - MASS [None]
  - MOUTH ULCERATION [None]
  - OEDEMA MOUTH [None]
  - OSTEOARTHRITIS [None]
  - OSTEOMYELITIS [None]
  - OSTEONECROSIS [None]
  - PAIN IN JAW [None]
  - PARAESTHESIA ORAL [None]
  - SENSORY DISTURBANCE [None]
  - SEQUESTRECTOMY [None]
  - SWELLING FACE [None]
  - TOOTH ABSCESS [None]
  - TOOTH EXTRACTION [None]
  - WEIGHT INCREASED [None]
